FAERS Safety Report 19026584 (Version 2)
Quarter: 2021Q2

REPORT INFORMATION
  Report Type: Report from Study
  Country: None (occurrence: US)
  Receive Date: 20210318
  Receipt Date: 20210611
  Transmission Date: 20210717
  Serious: Yes (Other)
  Sender: FDA-Public Use
  Company Number: US-ABBVIE-21P-163-3818090-00

PATIENT
  Age: 56 Year
  Sex: Male
  Weight: 99.5 kg

DRUGS (9)
  1. VENETOCLAX. [Suspect]
     Active Substance: VENETOCLAX
     Indication: CHRONIC LYMPHOCYTIC LEUKAEMIA
     Dosage: C3 DAYS 1?7
     Route: 048
     Dates: start: 20210105
  2. VENETOCLAX. [Suspect]
     Active Substance: VENETOCLAX
     Dosage: C3 DAYS 8?14
     Route: 048
  3. VENETOCLAX. [Suspect]
     Active Substance: VENETOCLAX
     Dosage: C3 DAYS 15?21
     Route: 048
  4. OBINUTUZUMAB. [Concomitant]
     Active Substance: OBINUTUZUMAB
     Dosage: C1 D2
     Route: 042
  5. OBINUTUZUMAB. [Concomitant]
     Active Substance: OBINUTUZUMAB
     Indication: CHRONIC LYMPHOCYTIC LEUKAEMIA
     Dosage: C1D1
     Route: 042
     Dates: start: 20210105
  6. OBINUTUZUMAB. [Concomitant]
     Active Substance: OBINUTUZUMAB
     Dosage: C1 D8,15; C2?6 D1
     Route: 042
     Dates: end: 20210330
  7. IBRUTINIB [Suspect]
     Active Substance: IBRUTINIB
     Indication: CHRONIC LYMPHOCYTIC LEUKAEMIA
     Dosage: DAYS 1?28, CYCLES 1?19
     Route: 048
     Dates: start: 20210105, end: 20210405
  8. VENETOCLAX. [Suspect]
     Active Substance: VENETOCLAX
     Dosage: C3 DAYS 22?28
     Route: 048
  9. VENETOCLAX. [Suspect]
     Active Substance: VENETOCLAX
     Dosage: C4?14 D1?28
     Route: 048
     Dates: end: 20210405

REACTIONS (4)
  - Tumour lysis syndrome [Recovered/Resolved]
  - Hypocalcaemia [Recovered/Resolved]
  - Neutrophil count decreased [Recovered/Resolved]
  - Neutrophil count decreased [Recovered/Resolved]

NARRATIVE: CASE EVENT DATE: 20210106
